FAERS Safety Report 8063418-4 (Version None)
Quarter: 2012Q1

REPORT INFORMATION
  Report Type: 
  Country: None (occurrence: None)
  Receive Date: 20120123
  Receipt Date: 20120117
  Transmission Date: 20120608
  Serious: No
  Sender: FDA-Public Use
  Company Number: US-PFIZER INC-2012013420

PATIENT
  Sex: Female
  Weight: 65.8 kg

DRUGS (4)
  1. ALAVERT [Suspect]
     Indication: EYE IRRITATION
  2. BONIVA [Concomitant]
     Indication: OSTEOPENIA
     Dosage: 150 MG, MONTHLY
  3. ALAVERT [Suspect]
     Indication: RHINORRHOEA
     Dosage: 10 MG, DAILY
     Route: 048
     Dates: start: 20120101
  4. ALAVERT [Suspect]
     Indication: LACRIMATION INCREASED

REACTIONS (1)
  - DRUG INEFFECTIVE [None]
